FAERS Safety Report 22146071 (Version 2)
Quarter: 2023Q2

REPORT INFORMATION
  Report Type: Spontaneous
  Country: CH (occurrence: CH)
  Receive Date: 20230328
  Receipt Date: 20230504
  Transmission Date: 20230722
  Serious: Yes (Other)
  Sender: FDA-Public Use
  Company Number: CH-BAYER-2023A039545

PATIENT
  Sex: Male

DRUGS (3)
  1. EYLEA [Suspect]
     Active Substance: AFLIBERCEPT
     Indication: Product used for unknown indication
     Dosage: UNK, ONCE LEFT EYE; SOLUTION FOR INJECTION; 40 MG/ML
     Route: 031
     Dates: start: 20221117, end: 20221117
  2. EYLEA [Suspect]
     Active Substance: AFLIBERCEPT
     Dosage: UNK, ONCE; SOLUTION FOR INJECTION; 40 MG/ML
     Dates: start: 20221120, end: 20221120
  3. EYLEA [Suspect]
     Active Substance: AFLIBERCEPT
     Dosage: UNK, SOLUTION FOR INJECTION; 40 MG/ML
     Dates: start: 20221220, end: 20221220

REACTIONS (4)
  - Blindness transient [Unknown]
  - Vitreous disorder [Unknown]
  - Vitritis [Unknown]
  - Visual acuity reduced [Unknown]
